FAERS Safety Report 10005839 (Version 1)
Quarter: 2014Q1

REPORT INFORMATION
  Report Type: Spontaneous
  Country: GB (occurrence: GB)
  Receive Date: 20140313
  Receipt Date: 20140313
  Transmission Date: 20141002
  Serious: Yes (Death, Other)
  Sender: FDA-Public Use
  Company Number: GB-AMGEN-GBRSP2014016622

PATIENT
  Age: 69 Year
  Sex: Female

DRUGS (19)
  1. NEULASTA [Suspect]
     Indication: NEUTROPENIC SEPSIS
     Dosage: 6 MG, UNK
     Route: 058
     Dates: start: 20130903, end: 20130903
  2. NEULASTA [Suspect]
     Indication: PROPHYLAXIS
  3. AMITRIPTYLINE [Concomitant]
     Dosage: UNK
  4. BENDROFLUMETHIAZIDE [Concomitant]
     Dosage: UNK
  5. BISACODYL [Concomitant]
     Dosage: UNK
  6. CALCICHEW D3 [Concomitant]
     Dosage: UNK
  7. CO-CODAMOL [Concomitant]
     Dosage: UNK
  8. CYCLOPHOSPHAMIDE [Concomitant]
     Indication: DIFFUSE LARGE B-CELL LYMPHOMA
     Dosage: UNK
  9. DIHYDROCODEINE [Concomitant]
     Dosage: UNK
  10. DOXORUBICIN HYDROCHLORIDE [Concomitant]
     Indication: DIFFUSE LARGE B-CELL LYMPHOMA
     Dosage: UNK
  11. METOCLOPRAMIDE [Concomitant]
     Dosage: UNK
  12. MORPHINE SULPHATE [Concomitant]
     Dosage: UNK
  13. PARACETAMOL [Concomitant]
     Dosage: UNK
  14. PERINDOPRIL [Concomitant]
     Dosage: UNK
  15. PREDNISOLONE [Concomitant]
     Indication: DIFFUSE LARGE B-CELL LYMPHOMA
     Dosage: UNK
  16. RITUXIMAB [Concomitant]
     Indication: DIFFUSE LARGE B-CELL LYMPHOMA
     Dosage: UNK
  17. SIMVASTATIN [Concomitant]
     Dosage: UNK
  18. VINCRISTINE [Concomitant]
     Indication: DIFFUSE LARGE B-CELL LYMPHOMA
     Dosage: UNK
  19. ZOPICLONE [Concomitant]
     Dosage: UNK

REACTIONS (6)
  - Leukoencephalopathy [Fatal]
  - Peroneal nerve palsy [Not Recovered/Not Resolved]
  - Mobility decreased [Not Recovered/Not Resolved]
  - Sensory loss [Not Recovered/Not Resolved]
  - Grand mal convulsion [Recovered/Resolved]
  - Muscular weakness [Not Recovered/Not Resolved]
